FAERS Safety Report 20937213 (Version 1)
Quarter: 2022Q2

REPORT INFORMATION
  Report Type: Spontaneous
  Country: GB (occurrence: GB)
  Receive Date: 20220609
  Receipt Date: 20220609
  Transmission Date: 20220720
  Serious: Yes (Hospitalization)
  Sender: FDA-Public Use
  Company Number: None

PATIENT
  Age: 41 Year
  Sex: Male

DRUGS (12)
  1. CLINDAMYCIN [Suspect]
     Active Substance: CLINDAMYCIN
  2. MOXIFLOXACIN [Suspect]
     Active Substance: MOXIFLOXACIN
  3. ASTRAZENECA COVID-19 VACCINE [Suspect]
     Active Substance: AZD-1222
     Dosage: DOSE 1
     Dates: start: 20210507
  4. HUMAN RHO(D) IMMUNE GLOBULIN [Concomitant]
     Active Substance: HUMAN RHO(D) IMMUNE GLOBULIN
  5. BICTEGRAVIR [Concomitant]
     Active Substance: BICTEGRAVIR
     Indication: HIV infection
     Dates: start: 2021
  6. EMTRICITABINE [Concomitant]
     Active Substance: EMTRICITABINE
     Indication: HIV infection
     Dates: start: 202105
  7. LEVOLEUCOVORIN [Concomitant]
     Active Substance: LEVOLEUCOVORIN
     Indication: Toxoplasmosis
     Dates: start: 202104
  8. OMEPRAZOLE [Concomitant]
     Active Substance: OMEPRAZOLE
     Indication: Gastritis
     Dates: start: 202104
  9. PREGABALIN. [Concomitant]
     Indication: Neuralgia
     Dates: start: 202104, end: 202106
  10. PYRIMETHAMINE [Concomitant]
     Active Substance: PYRIMETHAMINE
     Indication: Toxoplasmosis
     Dates: start: 2021
  11. SULFADIAZINE [Concomitant]
     Active Substance: SULFADIAZINE
     Indication: Toxoplasmosis
     Dates: start: 202104
  12. TENOFOVIR ALAFENAMIDE [Concomitant]
     Active Substance: TENOFOVIR ALAFENAMIDE
     Indication: HIV infection
     Dates: start: 202103

REACTIONS (5)
  - Hypercoagulation [Unknown]
  - Dyspnoea [Unknown]
  - Hypoxia [Unknown]
  - Haemorrhage [Unknown]
  - Pulmonary venous thrombosis [Recovering/Resolving]

NARRATIVE: CASE EVENT DATE: 20210611
